FAERS Safety Report 7019550-7 (Version None)
Quarter: 2010Q3

REPORT INFORMATION
  Report Type: 
  Country: None (occurrence: None)
  Receive Date: 20100928
  Receipt Date: 20100928
  Transmission Date: 20110219
  Serious: Yes (Hospitalization, Other)
  Sender: FDA-Public Use
  Company Number: None

PATIENT
  Age: 60 Year
  Sex: Female
  Weight: 113.3993 kg

DRUGS (1)
  1. OXYCONTIN [Suspect]
     Indication: PAIN
     Dosage: 5 TABS 4 TIMES DAILY PO
     Route: 048
     Dates: start: 19981123, end: 20100924

REACTIONS (5)
  - ACTIVITIES OF DAILY LIVING IMPAIRED [None]
  - DRUG INEFFECTIVE [None]
  - DRUG TOLERANCE [None]
  - PRODUCT FORMULATION ISSUE [None]
  - PRODUCT SUBSTITUTION ISSUE [None]
